FAERS Safety Report 9599346 (Version 1)
Quarter: 2013Q4

REPORT INFORMATION
  Report Type: Spontaneous
  Country: US (occurrence: US)
  Receive Date: 20131004
  Receipt Date: 20131004
  Transmission Date: 20140711
  Serious: No
  Sender: FDA-Public Use
  Company Number: US-AMGEN-USASP2013029098

PATIENT
  Age: 19 Year
  Sex: Female
  Weight: 54.42 kg

DRUGS (4)
  1. ENBREL [Suspect]
     Indication: PRODUCT USED FOR UNKNOWN INDICATION
     Dosage: 50 MG, QWK
     Route: 058
  2. TRI-SPRINTEC [Concomitant]
     Dosage: UNK
  3. ALEVE [Concomitant]
     Dosage: 220 MG, UNK
  4. MOTRIN [Concomitant]
     Dosage: 400 MG, UNK

REACTIONS (2)
  - Therapeutic response decreased [Unknown]
  - Pharyngitis streptococcal [Unknown]
